FAERS Safety Report 5965111-8 (Version None)
Quarter: 2008Q4

REPORT INFORMATION
  Report Type: 
  Country: None (occurrence: None)
  Receive Date: 20081125
  Receipt Date: 20081119
  Transmission Date: 20090506
  Serious: Yes (Death, Life-Threatening, Hospitalization, Other)
  Sender: FDA-Public Use
  Company Number: PHHO2008GB13587

PATIENT
  Sex: Female
  Weight: 54.6 kg

DRUGS (1)
  1. STI571/CGP57148B T35717+CAPS [Suspect]
     Indication: CHRONIC MYELOID LEUKAEMIA
     Dosage: 400 MG, QD
     Route: 048
     Dates: start: 20001115

REACTIONS (20)
  - ABDOMINAL DISTENSION [None]
  - ABDOMINAL PAIN LOWER [None]
  - ABDOMINAL PAIN UPPER [None]
  - ACUTE ABDOMEN [None]
  - CARDIAC ARREST [None]
  - CIRCULATORY COLLAPSE [None]
  - DEHYDRATION [None]
  - FAECAL VOMITING [None]
  - GASTROINTESTINAL ULCER [None]
  - HYPOTENSION [None]
  - MALAISE [None]
  - NAUSEA [None]
  - PHARYNGEAL OEDEMA [None]
  - PNEUMONIA ASPIRATION [None]
  - REGURGITATION [None]
  - RENAL FAILURE ACUTE [None]
  - SENSATION OF FOREIGN BODY [None]
  - UNRESPONSIVE TO STIMULI [None]
  - UPPER GASTROINTESTINAL HAEMORRHAGE [None]
  - VOMITING [None]
